FAERS Safety Report 8044143-2 (Version None)
Quarter: 2012Q1

REPORT INFORMATION
  Report Type: 
  Country: None (occurrence: None)
  Receive Date: 20120113
  Receipt Date: 20120104
  Transmission Date: 20120608
  Serious: Yes (Hospitalization, Other)
  Sender: FDA-Public Use
  Company Number: PHHY2010US46918

PATIENT
  Sex: Female

DRUGS (5)
  1. LEVAQUIN [Concomitant]
  2. OXYCONTIN [Concomitant]
     Dosage: 40 MG, Q12H
     Route: 048
  3. EXJADE [Suspect]
     Indication: SICKLE CELL ANAEMIA
     Dosage: 500 MG, TID
     Route: 048
     Dates: start: 20100514
  4. FOLIC ACID [Concomitant]
  5. PERCOCET [Concomitant]

REACTIONS (11)
  - BACK PAIN [None]
  - RED BLOOD CELL COUNT DECREASED [None]
  - URINARY TRACT INFECTION [None]
  - PAIN [None]
  - ANAEMIA [None]
  - MALAISE [None]
  - DIARRHOEA [None]
  - SICKLE CELL ANAEMIA WITH CRISIS [None]
  - WHITE BLOOD CELL COUNT INCREASED [None]
  - PULMONARY OEDEMA [None]
  - CARDIOMEGALY [None]
